FAERS Safety Report 10549285 (Version 3)
Quarter: 2014Q4

REPORT INFORMATION
  Report Type: Report from Study
  Country: US (occurrence: US)
  Receive Date: 20141028
  Receipt Date: 20141215
  Transmission Date: 20150529
  Serious: Yes (Hospitalization)
  Sender: FDA-Public Use
  Company Number: US-EXELIXIS-CABO-14004428

PATIENT
  Age: 54 Year
  Sex: Male

DRUGS (3)
  1. CABOZANTINIB [Suspect]
     Active Substance: CABOZANTINIB
     Dosage: 140 MG, QD
     Route: 048
     Dates: start: 20140825, end: 20141120
  2. CABOZANTINIB [Suspect]
     Active Substance: CABOZANTINIB
     Dosage: 140 MG, QD
     Route: 048
     Dates: start: 20140723, end: 20140818
  3. CABOZANTINIB [Suspect]
     Active Substance: CABOZANTINIB
     Indication: THYROID CANCER
     Dosage: 140 MG, QD
     Route: 048
     Dates: start: 20140612, end: 20140709

REACTIONS (13)
  - Confusional state [Unknown]
  - Pulmonary embolism [Unknown]
  - Ammonia increased [Unknown]
  - Seizure [Unknown]
  - Vomiting [Unknown]
  - Unevaluable event [Recovering/Resolving]
  - Dizziness [Unknown]
  - Constipation [Unknown]
  - Drug dose omission [None]
  - Pneumonia aspiration [Unknown]
  - Fall [Unknown]
  - Headache [Unknown]
  - Rash [Unknown]

NARRATIVE: CASE EVENT DATE: 2014
